FAERS Safety Report 5734734-3 (Version None)
Quarter: 2008Q2

REPORT INFORMATION
  Report Type: 
  Country: None (occurrence: None)
  Receive Date: 20080512
  Receipt Date: 20080403
  Transmission Date: 20081010
  Serious: Yes (Other)
  Sender: FDA-Public Use
  Company Number: US-JNJFOC-20071101617

PATIENT
  Sex: Female
  Weight: 103.42 kg

DRUGS (6)
  1. ORTHO EVRA [Suspect]
     Indication: CONTRACEPTION
  2. ALBUTEROL [Concomitant]
     Indication: WHEEZING
     Route: 055
  3. ACETAMINOPHEN W/ CODEINE [Concomitant]
     Indication: PAIN
     Route: 048
  4. NOVOLIN N [Concomitant]
  5. REGULAR INSULIN [Concomitant]
  6. PRENAVITE [Concomitant]
     Route: 048

REACTIONS (4)
  - DEEP VEIN THROMBOSIS [None]
  - DRUG EXPOSURE DURING PREGNANCY [None]
  - GESTATIONAL DIABETES [None]
  - PREGNANCY WITH CONTRACEPTIVE PATCH [None]
